FAERS Safety Report 6529008-7 (Version None)
Quarter: 2009Q4

REPORT INFORMATION
  Report Type: 
  Country: None (occurrence: None)
  Receive Date: 20091230
  Receipt Date: 20091211
  Transmission Date: 20100525
  Serious: Yes (Other)
  Sender: FDA-Public Use
  Company Number: 002443

PATIENT
  Age: 35 Year
  Sex: Female

DRUGS (3)
  1. LACOSAMIDE [Suspect]
     Dosage: (600 MG)
  2. LAMOTRIGINE [Concomitant]
  3. GABAPENTIN [Concomitant]

REACTIONS (4)
  - COMPLEX PARTIAL SEIZURES [None]
  - GAMMA-GLUTAMYLTRANSFERASE INCREASED [None]
  - NAUSEA [None]
  - VOMITING [None]
